FAERS Safety Report 16980350 (Version 3)
Quarter: 2020Q1

REPORT INFORMATION
  Report Type: Spontaneous
  Country: CH (occurrence: CH)
  Receive Date: 20191031
  Receipt Date: 20200309
  Transmission Date: 20200409
  Serious: Yes (Life-Threatening, Other)
  Sender: FDA-Public Use
  Company Number: CH-BAUSCH-BL-2019-058899

PATIENT
  Age: 73 Year
  Sex: Male

DRUGS (14)
  1. METRONIDAZOLE. [Suspect]
     Active Substance: METRONIDAZOLE
     Indication: ESCHERICHIA BACTERAEMIA
  2. CLINDAMYCIN. [Suspect]
     Active Substance: CLINDAMYCIN
     Indication: ESCHERICHIA BACTERAEMIA
  3. ONDANSETRON [Suspect]
     Active Substance: ONDANSETRON
     Indication: LIVER ABSCESS
     Route: 065
  4. PANTOZOL [Concomitant]
     Active Substance: PANTOPRAZOLE SODIUM
     Indication: PRODUCT USED FOR UNKNOWN INDICATION
  5. CLINDAMYCIN. [Suspect]
     Active Substance: CLINDAMYCIN
     Indication: LIVER ABSCESS
     Route: 065
     Dates: start: 20190305, end: 20190313
  6. CEFTRIAXONE. [Suspect]
     Active Substance: CEFTRIAXONE
     Indication: LIVER ABSCESS
     Dosage: 2 MONTHS 9 DAYS
     Route: 065
     Dates: start: 20190106, end: 20190314
  7. CEFTRIAXONE. [Suspect]
     Active Substance: CEFTRIAXONE
     Indication: ESCHERICHIA BACTERAEMIA
  8. ERTAPENEM. [Suspect]
     Active Substance: ERTAPENEM SODIUM
     Indication: ESCHERICHIA BACTERAEMIA
  9. AMLODIPIN PFIZER [Concomitant]
     Active Substance: AMLODIPINE BESYLATE
     Indication: PRODUCT USED FOR UNKNOWN INDICATION
  10. METRONIDAZOLE. [Suspect]
     Active Substance: METRONIDAZOLE
     Indication: LIVER ABSCESS
     Dosage: 1 MONTH 27 DAYS
     Route: 065
     Dates: start: 20190107, end: 20190305
  11. ERTAPENEM. [Suspect]
     Active Substance: ERTAPENEM SODIUM
     Indication: LIVER ABSCESS
     Route: 065
     Dates: start: 20190314, end: 20190322
  12. ATORVASTATIN PFIZER [Concomitant]
     Active Substance: ATORVASTATIN
     Indication: PRODUCT USED FOR UNKNOWN INDICATION
  13. FRAGMIN [Concomitant]
     Active Substance: DALTEPARIN SODIUM
     Indication: PRODUCT USED FOR UNKNOWN INDICATION
     Dosage: PRE FILLED SYRINGES
  14. ONDANSETRON [Suspect]
     Active Substance: ONDANSETRON
     Indication: ESCHERICHIA BACTERAEMIA

REACTIONS (11)
  - Vitamin A deficiency [Unknown]
  - Malnutrition [Unknown]
  - Folate deficiency [Unknown]
  - Wernicke^s encephalopathy [Recovering/Resolving]
  - Vitamin D deficiency [Unknown]
  - Magnesium deficiency [Unknown]
  - Nausea [Unknown]
  - Vitamin B1 deficiency [Unknown]
  - Decreased appetite [Unknown]
  - Weight decreased [Unknown]
  - Decreased interest [Unknown]

NARRATIVE: CASE EVENT DATE: 2019
